FAERS Safety Report 5653833-8 (Version None)
Quarter: 2008Q1

REPORT INFORMATION
  Report Type: 
  Country: None (occurrence: None)
  Receive Date: 20080306
  Receipt Date: 20070621
  Transmission Date: 20080703
  Serious: Yes (Death, Life-Threatening, Hospitalization)
  Sender: FDA-Public Use
  Company Number: AUWYE514204AUG06

PATIENT
  Sex: Male
  Weight: 88 kg

DRUGS (1)
  1. TIGECYCLINE [Suspect]
     Indication: ENTEROCOCCAL SEPSIS
     Dosage: 100 MG LOADING DOSE, THEN 50 MG EVERY 12 HOURS
     Route: 042
     Dates: start: 20060406, end: 20060411

REACTIONS (5)
  - APLASTIC ANAEMIA [None]
  - FUNGAL INFECTION [None]
  - HAEMORRHAGE [None]
  - LUNG INFECTION [None]
  - MULTI-ORGAN FAILURE [None]
